FAERS Safety Report 8234289-8 (Version None)
Quarter: 2012Q1

REPORT INFORMATION
  Report Type: 
  Country: None (occurrence: None)
  Receive Date: 20120326
  Receipt Date: 20120316
  Transmission Date: 20120608
  Serious: Yes (Hospitalization, Congenital Anomaly, Other)
  Sender: FDA-Public Use
  Company Number: US-JNJFOC-20111104016

PATIENT
  Sex: Male

DRUGS (8)
  1. ALDOMET [Concomitant]
     Indication: HYPERTENSION
     Route: 065
  2. HYDROCODONE [Suspect]
     Indication: FOETAL EXPOSURE DURING PREGNANCY
     Route: 064
  3. CLINDAMYCIN [Concomitant]
     Indication: FOETAL EXPOSURE DURING PREGNANCY
     Route: 064
  4. TOPAMAX [Suspect]
     Indication: FOETAL EXPOSURE DURING PREGNANCY
     Route: 064
     Dates: start: 20080617, end: 20080717
  5. TYLENOL W/ CODEINE [Suspect]
     Indication: FOETAL EXPOSURE DURING PREGNANCY
     Route: 064
  6. ZANTAC [Suspect]
     Indication: PRODUCT USED FOR UNKNOWN INDICATION
     Route: 065
  7. TOPAMAX [Suspect]
     Route: 064
     Dates: start: 20070401, end: 20080101
  8. VITAMIN AND MINERAL PRENATAL SUPPLEMENT W/ FOLIC ACID CAP [Concomitant]
     Indication: PRODUCT USED FOR UNKNOWN INDICATION
     Route: 065

REACTIONS (21)
  - ANKYLOGLOSSIA CONGENITAL [None]
  - PNEUMONIA ASPIRATION [None]
  - EMOTIONAL DISTRESS [None]
  - ASTHMA [None]
  - ASTIGMATISM [None]
  - DENTAL CARIES [None]
  - FEEDING DISORDER [None]
  - CLEFT PALATE [None]
  - HYPERMETROPIA [None]
  - EYE DISORDER [None]
  - MULTIPLE ALLERGIES [None]
  - GASTROOESOPHAGEAL REFLUX DISEASE [None]
  - GINGIVITIS [None]
  - DEVELOPMENTAL DELAY [None]
  - ANAEMIA [None]
  - STRABISMUS [None]
  - AMBLYOPIA [None]
  - CLEFT UVULA [None]
  - CONSTIPATION [None]
  - HETEROPHORIA [None]
  - SPEECH DISORDER [None]
